FAERS Safety Report 18604988 (Version 2)
Quarter: 2021Q1

REPORT INFORMATION
  Report Type: Report from Study
  Country: CA (occurrence: CA)
  Receive Date: 20201211
  Receipt Date: 20210219
  Transmission Date: 20210419
  Serious: Yes (Other)
  Sender: FDA-Public Use
  Company Number: CA-EMD SERONO-9203667

PATIENT
  Sex: Male

DRUGS (1)
  1. MAVENCLAD [Suspect]
     Active Substance: CLADRIBINE
     Indication: MULTIPLE SCLEROSIS
     Dates: start: 20200603

REACTIONS (5)
  - Diarrhoea [Recovered/Resolved]
  - Vertebral osteophyte [Recovered/Resolved]
  - Vertebral foraminal stenosis [Recovered/Resolved]
  - Nausea [Recovered/Resolved]
  - Intervertebral disc protrusion [Recovered/Resolved]
